FAERS Safety Report 20200679 (Version 2)
Quarter: 2023Q1

REPORT INFORMATION
  Report Type: Report from Study
  Country: GB (occurrence: GB)
  Receive Date: 20211217
  Receipt Date: 20230103
  Transmission Date: 20230418
  Serious: Yes (Death)
  Sender: FDA-Public Use
  Company Number: GB-PFIZER INC-202101772508

PATIENT

DRUGS (3)
  1. PACLITAXEL [Suspect]
     Active Substance: PACLITAXEL
     Indication: Breast cancer
     Dosage: ON DAYS 1, 8 AND 15 OF A 28-DAY CYCLE
  2. IPATASERTIB [Suspect]
     Active Substance: IPATASERTIB
     Indication: Breast cancer
     Dosage: ON DAYS 1-21, OF A 28-DAY CYCLE
  3. LOPERAMIDE [Concomitant]
     Active Substance: LOPERAMIDE
     Indication: Prophylaxis against diarrhoea
     Dosage: FIRST CYCLE

REACTIONS (1)
  - Febrile neutropenia [Fatal]
